FAERS Safety Report 9936035 (Version 1)
Quarter: 2014Q1

REPORT INFORMATION
  Report Type: Spontaneous
  Country: US (occurrence: US)
  Receive Date: 20140228
  Receipt Date: 20140228
  Transmission Date: 20141002
  Serious: No
  Sender: FDA-Public Use
  Company Number: US-AMGEN-USASP2013079434

PATIENT
  Age: 52 Year
  Sex: Female

DRUGS (2)
  1. ENBREL [Suspect]
     Indication: PSORIATIC ARTHROPATHY
     Dosage: 50 MG, QWK
     Route: 065
     Dates: start: 20120809, end: 201309
  2. METHOTREXATE [Concomitant]
     Dosage: UNK

REACTIONS (8)
  - Oral pain [Not Recovered/Not Resolved]
  - Aphthous stomatitis [Not Recovered/Not Resolved]
  - Impaired healing [Not Recovered/Not Resolved]
  - Laceration [Recovered/Resolved]
  - Local swelling [Recovered/Resolved]
  - Inflammation [Not Recovered/Not Resolved]
  - Cystitis [Recovered/Resolved]
  - Localised infection [Recovered/Resolved]
